FAERS Safety Report 9747977 (Version 2)
Quarter: 2013Q4

REPORT INFORMATION
  Report Type: Spontaneous
  Country: US (occurrence: US)
  Receive Date: 20131212
  Receipt Date: 20131212
  Transmission Date: 20140711
  Serious: Yes (Other)
  Sender: FDA-Public Use
  Company Number: US-TEVA-388790USA

PATIENT
  Age: 40 Year
  Sex: Female

DRUGS (2)
  1. PARAGARD 380A [Suspect]
     Indication: CONTRACEPTION
     Route: 015
     Dates: start: 201211
  2. IBUPROFEN [Concomitant]
     Indication: MUSCLE SPASMS

REACTIONS (4)
  - Device dislocation [Unknown]
  - Endometritis [Unknown]
  - Pain [Unknown]
  - Menstruation delayed [Unknown]
